FAERS Safety Report 13046460 (Version 2)
Quarter: 2017Q4

REPORT INFORMATION
  Report Type: Spontaneous
  Country: US (occurrence: US)
  Receive Date: 20161220
  Receipt Date: 20171010
  Transmission Date: 20180320
  Serious: No
  Sender: FDA-Public Use
  Company Number: US-PFIZER INC-2016586859

PATIENT
  Age: 51 Year
  Sex: Male
  Weight: 83.1 kg

DRUGS (1)
  1. SILDENAFIL CITRATE. [Suspect]
     Active Substance: SILDENAFIL CITRATE
     Indication: ERECTILE DYSFUNCTION
     Dosage: 20 MG TABLET TAKE ONE TABLET DAILY AS NEEDED

REACTIONS (1)
  - Drug ineffective for unapproved indication [Not Recovered/Not Resolved]
